FAERS Safety Report 9848735 (Version 1)
Quarter: 2013Q4

REPORT INFORMATION
  Report Type: Spontaneous
  Country: US (occurrence: None)
  Receive Date: 20131226
  Receipt Date: 20131226
  Transmission Date: 20140711
  Serious: Yes (Other)
  Sender: FDA-Public Use
  Company Number: PHEH2013US011554

PATIENT
  Sex: Male

DRUGS (8)
  1. TEKTURNA [Suspect]
  2. COREG (CARVEDILOL) [Concomitant]
  3. ALLOPURINOL (ALLOPURINOL) [Concomitant]
  4. SENSIPAR (CINACALCET HYDROCHLORIDE) [Concomitant]
  5. HYDROCODONE/ACETAMINOPHEN?/00607101/ (HYDROCODONE BITARTRATE, PARACETAMOL) [Concomitant]
  6. ENALAPRIL MALEATE (ENALAPRIL MALEATE) [Concomitant]
  7. LIPITOR (ATORVASTATIN CALCIUM) [Concomitant]
  8. PLAQUENIL (HYDROXYCHLOROQUINE SULFATE) / ORAL / TABLET, FILM COATED / 200 MILLIGRAM(S) [Concomitant]

REACTIONS (1)
  - Renal impairment [None]
